FAERS Safety Report 18585107 (Version 1)
Quarter: 2020Q4

REPORT INFORMATION
  Report Type: Report from Study
  Country: US (occurrence: US)
  Receive Date: 20201207
  Receipt Date: 20201207
  Transmission Date: 20210114
  Serious: Yes (Death)
  Sender: FDA-Public Use
  Company Number: US-PFIZER INC-2020474829

PATIENT

DRUGS (8)
  1. TRASTUZUMAB. [Suspect]
     Active Substance: TRASTUZUMAB
     Indication: HER2 PROTEIN OVEREXPRESSION
     Dosage: 4 MG/KG, CYCLIC(AS A LOADING DOSE)
  2. PACLITAXEL. [Suspect]
     Active Substance: PACLITAXEL
     Indication: HER2 PROTEIN OVEREXPRESSION
     Dosage: 200 MG/M2, CYCLIC(ON DAY 1)
  3. TRASTUZUMAB. [Suspect]
     Active Substance: TRASTUZUMAB
     Indication: TRANSITIONAL CELL CARCINOMA
     Dosage: 2 MG/KG, CYCLIC(ON DAYS 1, 8, AND 15)
  4. PACLITAXEL. [Suspect]
     Active Substance: PACLITAXEL
     Indication: TRANSITIONAL CELL CARCINOMA
  5. CARBOPLATIN. [Suspect]
     Active Substance: CARBOPLATIN
     Indication: HER2 PROTEIN OVEREXPRESSION
     Dosage: UNK, CYCLIC(AREA UNDER THE CURVE OF 5 ON DAY 1)
  6. CARBOPLATIN. [Suspect]
     Active Substance: CARBOPLATIN
     Indication: TRANSITIONAL CELL CARCINOMA
  7. GEMCITABINE HYDROCHLORIDE. [Suspect]
     Active Substance: GEMCITABINE HYDROCHLORIDE
     Indication: HER2 PROTEIN OVEREXPRESSION
     Dosage: 800 MG/M2, CYCLIC(ON DAYS 1 AND 8)
  8. GEMCITABINE HYDROCHLORIDE. [Suspect]
     Active Substance: GEMCITABINE HYDROCHLORIDE
     Indication: TRANSITIONAL CELL CARCINOMA

REACTIONS (2)
  - Febrile neutropenia [Fatal]
  - Infection [Fatal]
